FAERS Safety Report 8785375 (Version 1)
Quarter: 2012Q4

REPORT INFORMATION
  Report Type: 
  Country: US (occurrence: US)
  Receive Date: 20120914
  Receipt Date: 20120914
  Transmission Date: 20130627
  Serious: No
  Sender: FDA-Public Use
  Company Number: US-PFIZER INC-2012226037

PATIENT
  Age: 50 Year
  Sex: Female
  Weight: 66.21 kg

DRUGS (3)
  1. PRISTIQ [Suspect]
     Indication: DEPRESSION
     Dosage: 50 mg, 1x/day
     Route: 048
     Dates: start: 20120904
  2. TRAZODONE [Concomitant]
     Dosage: 50 mg, UNK
  3. KLONOPIN [Concomitant]
     Indication: ANXIETY
     Dosage: 1 mg, UNK

REACTIONS (2)
  - Emotional disorder [Unknown]
  - Middle insomnia [Unknown]
